FAERS Safety Report 9844461 (Version 1)
Quarter: 2014Q1

REPORT INFORMATION
  Report Type: Spontaneous
  Country: TR (occurrence: None)
  Receive Date: 20140123
  Receipt Date: 20140123
  Transmission Date: 20141002
  Serious: Yes (Other)
  Sender: FDA-Public Use
  Company Number: 2014P1000401

PATIENT
  Age: 1 Day
  Sex: Female

DRUGS (2)
  1. LAMOTRIGINE [Suspect]
     Route: 064
  2. VALPROIC ACID [Suspect]
     Route: 064

REACTIONS (6)
  - Decreased activity [None]
  - Feeding disorder neonatal [None]
  - Hypotonia neonatal [None]
  - Maternal drugs affecting foetus [None]
  - Grunting [None]
  - Hyporeflexia [None]
